FAERS Safety Report 15231555 (Version 2)
Quarter: 2018Q3

REPORT INFORMATION
  Report Type: Spontaneous
  Country: IL (occurrence: IL)
  Receive Date: 20180802
  Receipt Date: 20180822
  Transmission Date: 20181010
  Serious: Yes (Death)
  Sender: FDA-Public Use
  Company Number: IL-CELGENEUS-ISR-20180710492

PATIENT
  Sex: Female

DRUGS (6)
  1. AMIODARON [Concomitant]
     Active Substance: AMIODARONE
     Indication: ATRIAL FIBRILLATION
     Dosage: 200 GRAM
     Route: 065
     Dates: start: 20170925, end: 20180704
  2. MICROPIRIN [Concomitant]
     Active Substance: ASPIRIN
     Indication: MYOCARDIAL ISCHAEMIA
     Dosage: 100 GRAM
     Route: 065
     Dates: start: 20160424, end: 20180704
  3. VENOFER [Concomitant]
     Active Substance: IRON SUCROSE
     Indication: ANAEMIA
     Dosage: 100 GRAM
     Route: 065
     Dates: start: 20120705, end: 20180704
  4. LOSEC [Concomitant]
     Active Substance: OMEPRAZOLE
     Indication: DYSPEPSIA
     Dosage: 20 MILLIGRAM
     Route: 065
     Dates: start: 20170911, end: 20180704
  5. ARANESP [Concomitant]
     Active Substance: DARBEPOETIN ALFA
     Indication: ANAEMIA
     Dosage: 60 MICROGRAM
     Route: 058
     Dates: start: 20171008, end: 20180704
  6. REVLIMID [Suspect]
     Active Substance: LENALIDOMIDE
     Indication: MANTLE CELL LYMPHOMA
     Dosage: 15 MILLIGRAM
     Route: 048
     Dates: start: 20170901, end: 20180625

REACTIONS (2)
  - Septic shock [Fatal]
  - Cellulitis [Fatal]

NARRATIVE: CASE EVENT DATE: 20180626
